FAERS Safety Report 10404202 (Version 1)
Quarter: 2014Q1

REPORT INFORMATION
  Report Type: Spontaneous
  Country: US (occurrence: None)
  Receive Date: 20131226
  Receipt Date: 20131226
  Transmission Date: 20141002
  Serious: Yes (Other)
  Sender: FDA-Public Use
  Company Number: PHEH2012US001009

PATIENT
  Age: 8 Year
  Sex: Male

DRUGS (7)
  1. AFINITOR (RAD) UNKNOWN [Suspect]
     Indication: ASTROCYTOMA, LOW GRADE
     Route: 048
     Dates: start: 20110404, end: 20111211
  2. VIVANSE (VIVANSE) [Concomitant]
  3. RISPERDAL (RISPERIDONE) [Concomitant]
  4. TAURINE (TAURINE) [Concomitant]
  5. SABRIL (VIGABATRIN) [Concomitant]
  6. CLONAZEPAM (CLONAZEPAM) [Concomitant]
  7. TRAZODONE (TRAZODONE) [Concomitant]

REACTIONS (4)
  - Pneumonia [None]
  - Respiratory disorder [None]
  - White blood cell count decreased [None]
  - Pyrexia [None]
